FAERS Safety Report 13410885 (Version 2)
Quarter: 2017Q4

REPORT INFORMATION
  Report Type: Spontaneous
  Country: US (occurrence: US)
  Receive Date: 20170406
  Receipt Date: 20171123
  Transmission Date: 20180320
  Serious: No
  Sender: FDA-Public Use
  Company Number: US-JNJFOC-20170301390

PATIENT
  Sex: Male

DRUGS (6)
  1. RISPERDAL [Suspect]
     Active Substance: RISPERIDONE
     Indication: BIPOLAR DISORDER
     Dosage: 0.5MG, AND 1MG
     Route: 048
     Dates: start: 20060221, end: 20070209
  2. RISPERDAL M-TAB [Suspect]
     Active Substance: RISPERIDONE
     Indication: BIPOLAR DISORDER
     Dosage: 1MG AND 0.5 MG
     Route: 048
     Dates: start: 20060221, end: 20070209
  3. RISPERDAL CONSTA [Suspect]
     Active Substance: RISPERIDONE
     Indication: SCHIZOPHRENIA
     Dosage: 25MG AND 37.5 MG
     Route: 030
     Dates: start: 20060710, end: 20060928
  4. RISPERDAL CONSTA [Suspect]
     Active Substance: RISPERIDONE
     Indication: BIPOLAR DISORDER
     Dosage: 25MG AND 37.5 MG
     Route: 030
     Dates: start: 20060710, end: 20060928
  5. RISPERDAL M-TAB [Suspect]
     Active Substance: RISPERIDONE
     Indication: SCHIZOPHRENIA
     Dosage: 1MG AND 0.5 MG
     Route: 048
     Dates: start: 20060221, end: 20070209
  6. RISPERDAL [Suspect]
     Active Substance: RISPERIDONE
     Indication: SCHIZOPHRENIA
     Dosage: 0.5MG, AND 1MG
     Route: 048
     Dates: start: 20060221, end: 20070209

REACTIONS (2)
  - Gynaecomastia [Unknown]
  - Emotional disorder [Unknown]
